FAERS Safety Report 10162595 (Version 2)
Quarter: 2014Q2

REPORT INFORMATION
  Report Type: Report from Study
  Country: US (occurrence: US)
  Receive Date: 20140509
  Receipt Date: 20140529
  Transmission Date: 20141212
  Serious: Yes (Hospitalization)
  Sender: FDA-Public Use
  Company Number: PHEH2014US009275

PATIENT
  Age: 15 Year
  Sex: Male
  Weight: 36 kg

DRUGS (8)
  1. EXJADE [Suspect]
     Indication: SICKLE CELL ANAEMIA
     Dosage: 1250 MG, 4 X 250MG TABLETS IN AM AND 1 TABLET QPM
     Route: 048
  2. EXJADE [Suspect]
     Dosage: 1250 MG, 2X500MG AND 1X250MG
     Route: 048
  3. EXJADE [Suspect]
     Dosage: 1250 MG, 2X500MG AND 1X250MG AT BEDTIME
     Route: 048
     Dates: start: 20140503
  4. TOPAMAX [Concomitant]
     Dosage: 1 DF, BID
     Route: 048
  5. ADVIL//IBUPROFEN [Concomitant]
     Dosage: 1 DF, Q6H, AS NEEDED
     Route: 048
  6. MOTRIN [Concomitant]
     Dosage: 1 DF, Q6H, AS NEEDED
     Route: 048
  7. TYLENOL W/CODEINE NO. 3 [Concomitant]
     Dosage: 1 DF, Q4H, AS NEEDED
     Route: 048
  8. FOLVITE [Concomitant]
     Dosage: 1 DF, DAILY
     Route: 048

REACTIONS (14)
  - Bacteraemia [Recovered/Resolved]
  - White blood cell count increased [Unknown]
  - Pyrexia [Unknown]
  - Malaise [Unknown]
  - Device related infection [Recovered/Resolved]
  - Medical device complication [Unknown]
  - Pain [Unknown]
  - Ocular icterus [Unknown]
  - Blood pressure systolic increased [Unknown]
  - Platelet count increased [Unknown]
  - Cough [Unknown]
  - Headache [Unknown]
  - Haematocrit decreased [Unknown]
  - Haemoglobin decreased [Unknown]
